FAERS Safety Report 11154642 (Version 2)
Quarter: 2015Q3

REPORT INFORMATION
  Report Type: Spontaneous
  Country: US (occurrence: None)
  Receive Date: 20150529
  Receipt Date: 20150917
  Transmission Date: 20151125
  Serious: Yes (Death, Hospitalization, Other)
  Sender: FDA-Public Use
  Company Number: 1224850-2015-00029

PATIENT
  Age: 38 Year
  Sex: Male
  Weight: 77.11 kg

DRUGS (13)
  1. PHOSLO [Suspect]
     Active Substance: CALCIUM ACETATE
  2. XANAX [Concomitant]
     Active Substance: ALPRAZOLAM
  3. AMBIEN [Concomitant]
     Active Substance: ZOLPIDEM TARTRATE
  4. LOMOTIL [Concomitant]
     Active Substance: ATROPINE SULFATE\DIPHENOXYLATE HYDROCHLORIDE
  5. DESYREL [Concomitant]
     Active Substance: TRAZODONE HYDROCHLORIDE
  6. FLEXERIL [Concomitant]
     Active Substance: CYCLOBENZAPRINE HYDROCHLORIDE
  7. RENAGEL [Concomitant]
     Active Substance: SEVELAMER HYDROCHLORIDE
  8. OXYCONTIN [Concomitant]
     Active Substance: OXYCODONE HYDROCHLORIDE
  9. NEURONTIN [Concomitant]
     Active Substance: GABAPENTIN
  10. REQUIP [Concomitant]
     Active Substance: ROPINIROLE HYDROCHLORIDE
  11. KLONOPIN [Concomitant]
     Active Substance: CLONAZEPAM
  12. VALIUM [Concomitant]
     Active Substance: DIAZEPAM
  13. LYRICA [Concomitant]
     Active Substance: PREGABALIN

REACTIONS (6)
  - Gastrointestinal disorder [None]
  - Apallic syndrome [None]
  - Nervous system disorder [None]
  - Renal disorder [None]
  - Respiratory paralysis [None]
  - Paralysis [None]

NARRATIVE: CASE EVENT DATE: 20070609
